FAERS Safety Report 8059295-8 (Version None)
Quarter: 2012Q1

REPORT INFORMATION
  Report Type: 
  Country: None (occurrence: None)
  Receive Date: 20120120
  Receipt Date: 20111011
  Transmission Date: 20120608
  Serious: Yes (Other)
  Sender: FDA-Public Use
  Company Number: CA-JNJFOC-20120105959

PATIENT
  Sex: Female

DRUGS (1)
  1. REMICADE [Suspect]
     Indication: POLYMYALGIA RHEUMATICA
     Route: 042
     Dates: start: 20061101

REACTIONS (1)
  - HIP SURGERY [None]
